FAERS Safety Report 8037234-3 (Version None)
Quarter: 2012Q1

REPORT INFORMATION
  Report Type: 
  Country: None (occurrence: None)
  Receive Date: 20120109
  Receipt Date: 20111229
  Transmission Date: 20120608
  Serious: Yes (Life-Threatening)
  Sender: FDA-Public Use
  Company Number: 1150231

PATIENT
  Age: 19 Year
  Sex: Male

DRUGS (7)
  1. BACTRIM [Suspect]
     Indication: PRODUCT USED FOR UNKNOWN INDICATION
     Dosage: ORAL
     Route: 048
     Dates: start: 20100127, end: 20111206
  2. LEUCOVORIN CALCIUM [Suspect]
     Indication: PRODUCT USED FOR UNKNOWN INDICATION
     Dosage: ORAL
     Route: 048
     Dates: start: 20100127, end: 20111206
  3. VALACYCLOVIR HYDROCHLORIDE [Suspect]
     Indication: PRODUCT USED FOR UNKNOWN INDICATION
     Dosage: ORAL
     Route: 048
  4. PREDNISONE TAB [Suspect]
     Indication: GRAFT VERSUS HOST DISEASE
     Dosage: ORAL
     Route: 048
     Dates: end: 20111206
  5. AMITRIPTYLINE HCL [Suspect]
     Indication: DEPRESSION
     Dosage: ORAL
     Route: 048
     Dates: start: 20110222, end: 20111206
  6. PENTOSTATIN [Suspect]
     Indication: GRAFT VERSUS HOST DISEASE
     Dosage: 3 MG/M 2 MILLIGRAM(S)/SQ. METER 4 MG/M 2 MILLIGRAM(S)/SQ. METER
     Route: 042
     Dates: start: 20111027
  7. PROGRAF [Suspect]
     Indication: GRAFT VERSUS HOST DISEASE
     Dosage: 2 MG MILLIGRAM(S), 1 DAY, ORAL
     Route: 048
     Dates: start: 20110607, end: 20111206

REACTIONS (5)
  - THROMBOTIC MICROANGIOPATHY [None]
  - CONVULSION [None]
  - FALL [None]
  - HEAD INJURY [None]
  - HAEMORRHAGE INTRACRANIAL [None]
